FAERS Safety Report 15775694 (Version 1)
Quarter: 2018Q4

REPORT INFORMATION
  Report Type: Spontaneous
  Country: US (occurrence: US)
  Receive Date: 20181231
  Receipt Date: 20181231
  Transmission Date: 20190205
  Serious: Yes (Other)
  Sender: FDA-Public Use
  Company Number: US-ROCHE-2174675

PATIENT
  Sex: Female

DRUGS (2)
  1. ERIVEDGE [Suspect]
     Active Substance: VISMODEGIB
     Indication: SOFT TISSUE SARCOMA
  2. ERIVEDGE [Suspect]
     Active Substance: VISMODEGIB
     Indication: SOFT TISSUE SARCOMA
     Route: 048
     Dates: start: 20180525

REACTIONS (6)
  - Intentional product use issue [Unknown]
  - Hypogeusia [Unknown]
  - Asthenia [Unknown]
  - Off label use [Unknown]
  - Ageusia [Unknown]
  - Basal cell carcinoma [Unknown]
